FAERS Safety Report 9185921 (Version 1)
Quarter: 2013Q1

REPORT INFORMATION
  Report Type: Spontaneous
  Country: US (occurrence: None)
  Receive Date: 20130321
  Receipt Date: 20130321
  Transmission Date: 20140127
  Serious: Yes (Other)
  Sender: FDA-Public Use
  Company Number: 1639835

PATIENT
  Sex: 0

DRUGS (4)
  1. DOBUTAMINE HYDROCHLORIDE [Suspect]
     Route: 041
  2. DOPAMINE HYDROCHLORIDE [Suspect]
  3. MILRINONE [Suspect]
  4. TORSEMIDE [Suspect]

REACTIONS (2)
  - Myocarditis [None]
  - Type IV hypersensitivity reaction [None]
